FAERS Safety Report 5494404-6 (Version None)
Quarter: 2007Q4

REPORT INFORMATION
  Report Type: 
  Country: None (occurrence: None)
  Receive Date: 20071022
  Receipt Date: 20071022
  Transmission Date: 20080405
  Serious: Yes (Life-Threatening, Hospitalization, Other)
  Sender: FDA-Public Use
  Company Number: None

PATIENT
  Age: 43 Year
  Sex: Male
  Weight: 87.4 kg

DRUGS (1)
  1. TRICOR [Suspect]
     Indication: HYPERLIPIDAEMIA
     Dosage: 145 MG DAILY PO
     Route: 048
     Dates: start: 20070710, end: 20071012

REACTIONS (2)
  - ACUTE HEPATIC FAILURE [None]
  - HYPERLIPIDAEMIA [None]
